FAERS Safety Report 9651262 (Version 1)
Quarter: 2013Q4

REPORT INFORMATION
  Report Type: Spontaneous
  Country: US (occurrence: US)
  Receive Date: 20131029
  Receipt Date: 20131029
  Transmission Date: 20140711
  Serious: No
  Sender: FDA-Public Use
  Company Number: US-BIOGENIDEC-2013BI071151

PATIENT
  Age: 67 Year
  Sex: Female
  Weight: 63 kg

DRUGS (13)
  1. TECFIDERA [Suspect]
     Indication: MULTIPLE SCLEROSIS
     Route: 048
     Dates: start: 20130717
  2. TECFIDERA [Suspect]
     Indication: MULTIPLE SCLEROSIS
     Route: 048
     Dates: end: 20130804
  3. ESTROGEL [Concomitant]
  4. TIMOLOL GEL SOL 0.25% OP [Concomitant]
  5. XALATAN SOL 0.005% [Concomitant]
  6. IRON [Concomitant]
  7. VITAMIN C [Concomitant]
  8. CALCIUM + D [Concomitant]
  9. EVE PRIM OIL [Concomitant]
  10. ADRENAL [Concomitant]
  11. FISH OIL [Concomitant]
  12. IMODIUM ADV [Concomitant]
  13. ACIDOPHILUS [Concomitant]

REACTIONS (5)
  - Influenza like illness [Unknown]
  - Flatulence [Unknown]
  - Abdominal pain [Unknown]
  - Nausea [Unknown]
  - Vomiting [Unknown]
